FAERS Safety Report 7119091-2 (Version None)
Quarter: 2010Q4

REPORT INFORMATION
  Report Type: 
  Country: None (occurrence: None)
  Receive Date: 20101123
  Receipt Date: 20101119
  Transmission Date: 20110411
  Serious: Yes (Life-Threatening)
  Sender: FDA-Public Use
  Company Number: B0685572A

PATIENT
  Sex: Female
  Weight: 80 kg

DRUGS (4)
  1. AUGMENTIN [Suspect]
     Dosage: 1G TWICE PER DAY
     Route: 042
     Dates: start: 20100823, end: 20100823
  2. FEMARA [Concomitant]
     Indication: BREAST CANCER
     Route: 048
     Dates: start: 20030101
  3. ZOMETA [Concomitant]
     Dates: start: 20030101
  4. ELTHYRONE [Concomitant]
     Route: 048
     Dates: start: 19930101

REACTIONS (6)
  - ANAPHYLACTIC SHOCK [None]
  - FEELING HOT [None]
  - HYPOTENSION [None]
  - LOSS OF CONSCIOUSNESS [None]
  - RESPIRATORY ARREST [None]
  - VOMITING [None]
